FAERS Safety Report 13944370 (Version 1)
Quarter: 2017Q3

REPORT INFORMATION
  Report Type: Spontaneous
  Country: US (occurrence: US)
  Receive Date: 20170907
  Receipt Date: 20170907
  Transmission Date: 20171128
  Serious: Yes (Other)
  Sender: FDA-Public Use
  Company Number: US-ROCHE-1341759

PATIENT
  Age: 49 Year
  Sex: Female

DRUGS (7)
  1. VINCRISTIN [Concomitant]
     Active Substance: VINCRISTINE
     Route: 065
     Dates: start: 20140121
  2. CYCLOPHOSPHAMIDE. [Concomitant]
     Active Substance: CYCLOPHOSPHAMIDE
     Route: 065
     Dates: start: 20140121
  3. PREDNISONE. [Concomitant]
     Active Substance: PREDNISONE
     Route: 065
     Dates: start: 20140121
  4. ALLOPURINOL. [Concomitant]
     Active Substance: ALLOPURINOL
     Route: 065
     Dates: start: 20140115, end: 20140121
  5. EPINEPHRINE. [Concomitant]
     Active Substance: EPINEPHRINE
  6. RITUXAN [Suspect]
     Active Substance: RITUXIMAB
     Indication: PRODUCT USED FOR UNKNOWN INDICATION
     Route: 065
     Dates: start: 20140120
  7. DOXORUBICIN [Concomitant]
     Active Substance: DOXORUBICIN
     Route: 065
     Dates: start: 20140121

REACTIONS (10)
  - Anaphylactic reaction [Unknown]
  - Urticaria [Unknown]
  - Pruritus generalised [Unknown]
  - Back pain [Unknown]
  - Tachycardia [Unknown]
  - Stridor [Unknown]
  - Dyspnoea [Unknown]
  - Infusion related reaction [Unknown]
  - Generalised erythema [Unknown]
  - Flushing [Unknown]

NARRATIVE: CASE EVENT DATE: 20140120
